FAERS Safety Report 8340495-4 (Version None)
Quarter: 2012Q2

REPORT INFORMATION
  Report Type: 
  Country: None (occurrence: None)
  Receive Date: 20120507
  Receipt Date: 20090820
  Transmission Date: 20120825
  Serious: No
  Sender: FDA-Public Use
  Company Number: US-TEVA-2009008903

PATIENT
  Sex: Male
  Weight: 119.08 kg

DRUGS (2)
  1. RITUXAN [Concomitant]
     Indication: LYMPHOMA
  2. TREANDA [Suspect]
     Indication: LYMPHOMA
     Route: 042

REACTIONS (3)
  - INFUSION SITE EXTRAVASATION [None]
  - INJECTION SITE SWELLING [None]
  - INJECTION SITE PAIN [None]
